FAERS Safety Report 9397636 (Version 1)
Quarter: 2013Q3

REPORT INFORMATION
  Report Type: Spontaneous
  Country: US (occurrence: None)
  Receive Date: 20130711
  Receipt Date: 20130711
  Transmission Date: 20140515
  Serious: Yes (Hospitalization)
  Sender: FDA-Public Use
  Company Number: None

PATIENT
  Age: 73 Year
  Sex: Female
  Weight: 87 kg

DRUGS (15)
  1. VANCOMYCIN [Suspect]
     Indication: CELLULITIS
     Dosage: Q48H
     Route: 042
     Dates: start: 20130308, end: 20130312
  2. PIPERACILLIN/TAZOBACTAM [Suspect]
     Indication: CELLULITIS
     Dosage: 2.25 GRAMS Q6H IV
     Route: 042
     Dates: start: 20130309, end: 20130312
  3. CARISOPRODOL [Concomitant]
  4. CLOPIDOGREL [Concomitant]
  5. FENOFIBRATE [Concomitant]
  6. DIAZEPAM [Concomitant]
  7. FLUOXETINE [Concomitant]
  8. FLUTICASONE NASAL INHALER [Concomitant]
  9. ADVAIR DISKUS [Concomitant]
  10. GABAPENTIN [Concomitant]
  11. FUROSEMIDE [Concomitant]
  12. HEPARIN [Concomitant]
  13. LEVALBUTEROL [Concomitant]
  14. PREDNISONE [Concomitant]
  15. OXYCODONE [Concomitant]

REACTIONS (3)
  - Erythema [None]
  - Swelling [None]
  - Blood creatinine increased [None]
